FAERS Safety Report 23613014 (Version 1)
Quarter: 2024Q1

REPORT INFORMATION
  Report Type: Report from Study
  Country: US (occurrence: US)
  Receive Date: 20240308
  Receipt Date: 20240308
  Transmission Date: 20240410
  Serious: No
  Sender: FDA-Public Use
  Company Number: US-JAZZ PHARMACEUTICALS-2023-US-025585

PATIENT
  Sex: Male

DRUGS (16)
  1. XYWAV [Suspect]
     Active Substance: CALCIUM OXYBATE\MAGNESIUM OXYBATE\POTASSIUM OXYBATE\SODIUM OXYBATE
     Indication: Hypersomnia
     Dosage: 3 GRAM, QD
     Route: 048
     Dates: start: 20231227
  2. ALBUTEROL SULFATE [Concomitant]
     Active Substance: ALBUTEROL SULFATE
     Dosage: 0000
     Route: 048
     Dates: start: 20230706
  3. DULOXETINE HYDROCHLORIDE [Concomitant]
     Active Substance: DULOXETINE HYDROCHLORIDE
     Dosage: 0000
     Route: 048
     Dates: start: 20230403
  4. FARXIGA [Concomitant]
     Active Substance: DAPAGLIFLOZIN PROPANEDIOL
     Dosage: 0000
     Route: 048
     Dates: start: 20230203
  5. LEVEMIR [Concomitant]
     Active Substance: INSULIN DETEMIR
     Dosage: 0000
     Dates: start: 20231106
  6. LORAZEPAM [Concomitant]
     Active Substance: LORAZEPAM
     Dosage: 0000
     Route: 048
     Dates: start: 20230913
  7. SAVELLA [Concomitant]
     Active Substance: MILNACIPRAN HYDROCHLORIDE
     Dosage: 0000
     Dates: start: 20230104
  8. MODAFINIL [Concomitant]
     Active Substance: MODAFINIL
     Dosage: 0000
     Dates: start: 20231017
  9. NAPROXEN [Concomitant]
     Active Substance: NAPROXEN
     Dosage: 0000
     Dates: start: 20231017
  10. ONDANSETRON [Concomitant]
     Active Substance: ONDANSETRON
     Dosage: 0000
     Dates: start: 20230808
  11. PANTOPRAZOLE SODIUM ANHYDROUS [Concomitant]
     Active Substance: PANTOPRAZOLE SODIUM ANHYDROUS
     Dosage: 0000
     Dates: start: 20230405
  12. OZEMPIC [Concomitant]
     Active Substance: SEMAGLUTIDE
     Dosage: 0000
     Dates: start: 20230822
  13. UBRELVY [Concomitant]
     Active Substance: UBROGEPANT
     Dosage: 0000
     Dates: start: 20230104
  14. NOVOLOG [Concomitant]
     Active Substance: INSULIN ASPART
     Dosage: 0000
     Dates: start: 20211221
  15. CYCLOBENZAPRINE [Concomitant]
     Active Substance: CYCLOBENZAPRINE
     Dosage: 0000
     Dates: start: 20211221
  16. ADVIL COLD AND SINUS [Concomitant]
     Active Substance: IBUPROFEN\PSEUDOEPHEDRINE HYDROCHLORIDE
     Dosage: 0000
     Dates: start: 20231201

REACTIONS (4)
  - Heart rate increased [Unknown]
  - Insomnia [Unknown]
  - Feeling drunk [Unknown]
  - Fatigue [Unknown]
